FAERS Safety Report 10951977 (Version 1)
Quarter: 2015Q1

REPORT INFORMATION
  Report Type: Spontaneous
  Country: US (occurrence: US)
  Receive Date: 20150325
  Receipt Date: 20150325
  Transmission Date: 20150721
  Serious: Yes (Other)
  Sender: FDA-Public Use
  Company Number: US-JNJFOC-20150310493

PATIENT
  Age: 6 Month
  Sex: Male
  Weight: 6.8 kg

DRUGS (1)
  1. TYLENOL [Suspect]
     Active Substance: ACETAMINOPHEN
     Indication: PYREXIA
     Route: 048
     Dates: start: 20150116

REACTIONS (1)
  - Febrile convulsion [Recovered/Resolved]

NARRATIVE: CASE EVENT DATE: 20150116
